FAERS Safety Report 11127189 (Version 1)
Quarter: 2015Q2

REPORT INFORMATION
  Report Type: Spontaneous
  Country: US (occurrence: None)
  Receive Date: 20150520
  Receipt Date: 20150520
  Transmission Date: 20150821
  Serious: Yes (Hospitalization, Disabling)
  Sender: FDA-Public Use
  Company Number: None

PATIENT
  Age: 71 Year
  Sex: Male

DRUGS (5)
  1. LISINOPRIL. [Concomitant]
     Active Substance: LISINOPRIL
  2. PAROXETINE HCL [Suspect]
     Active Substance: PAROXETINE HYDROCHLORIDE
     Dosage: 1 CAPSULE BY MOUTH
     Dates: start: 20141006
  3. GABAPENTIN. [Suspect]
     Active Substance: GABAPENTIN
     Dosage: BY MOUTH; 90 PILLS
     Dates: start: 20140622, end: 20141008
  4. CLOPIDOGREL [Concomitant]
     Active Substance: CLOPIDOGREL BISULFATE
  5. HCTZ [Concomitant]
     Active Substance: HYDROCHLOROTHIAZIDE

REACTIONS (12)
  - Balance disorder [None]
  - Activities of daily living impaired [None]
  - Ligament disorder [None]
  - Fall [None]
  - Muscular weakness [None]
  - Pain [None]
  - Pain in extremity [None]
  - Confusional state [None]
  - Abasia [None]
  - Dysstasia [None]
  - Feeling abnormal [None]
  - Tendon disorder [None]

NARRATIVE: CASE EVENT DATE: 20141016
